FAERS Safety Report 4357277-0 (Version None)
Quarter: 2004Q2

REPORT INFORMATION
  Report Type: 
  Country: None (occurrence: None)
  Receive Date: 20040507
  Receipt Date: 20040419
  Transmission Date: 20050107
  Serious: Yes (Other)
  Sender: FDA-Public Use
  Company Number: US_0404102457

PATIENT
  Age: 27 Year
  Sex: Male
  Weight: 75 kg

DRUGS (3)
  1. HUMALOG [Suspect]
     Indication: DIABETES MELLITUS
     Dates: start: 19990101
  2. NPH INSULIN [Suspect]
     Indication: DIABETES MELLITUS
     Dosage: 30 U/1 DAY
     Dates: start: 19990101
  3. LIPITOR [Concomitant]

REACTIONS (4)
  - ACCIDENT [None]
  - BLOOD GLUCOSE INCREASED [None]
  - MEMORY IMPAIRMENT [None]
  - TRAUMATIC BRAIN INJURY [None]
